FAERS Safety Report 8890005 (Version 1)
Quarter: 2012Q4

REPORT INFORMATION
  Report Type: 
  Country: US (occurrence: US)
  Receive Date: 20121107
  Receipt Date: 20121107
  Transmission Date: 20130627
  Serious: Yes (Other)
  Sender: FDA-Public Use
  Company Number: PHHY2012US100419

PATIENT
  Sex: Female
  Weight: 113.38 kg

DRUGS (5)
  1. GILENYA [Suspect]
     Indication: MULTIPLE SCLEROSIS
     Dosage: 0.5 mg, QD
     Route: 048
     Dates: start: 20110101
  2. PROPRANOLOL [Concomitant]
     Indication: ESSENTIAL TREMOR
     Dosage: 40 mg, Q6H
     Route: 048
     Dates: start: 201202
  3. CELEXA [Concomitant]
     Dosage: 20 mg, UNK
  4. LISINOPRIL [Concomitant]
     Dosage: 10 mg, UNK
  5. TOPIRAMATE [Concomitant]
     Indication: MIGRAINE
     Dosage: 50 mg, QHS
     Route: 048
     Dates: start: 201202

REACTIONS (6)
  - Hypertensive crisis [Recovered/Resolved]
  - Chromaturia [Recovered/Resolved]
  - Dyspepsia [Recovered/Resolved]
  - Anxiety [Recovered/Resolved]
  - Dyspnoea [Recovered/Resolved]
  - Back pain [Recovered/Resolved]
